FAERS Safety Report 6747614-1 (Version None)
Quarter: 2010Q2

REPORT INFORMATION
  Report Type: 
  Country: None (occurrence: None)
  Receive Date: 20100528
  Receipt Date: 20100518
  Transmission Date: 20101027
  Serious: Yes (Hospitalization, Other)
  Sender: FDA-Public Use
  Company Number: PHHY2010HK23391

PATIENT
  Age: 28 Year
  Sex: Female

DRUGS (3)
  1. METHYLPHENIDATE HCL [Suspect]
     Dosage: 18 DF, ONCE/SINGLE
     Route: 048
  2. PARACETAMOL [Suspect]
     Dosage: UNK
  3. ANTI-COMMON COLD DRUGS,SYMPTOMATIC [Suspect]

REACTIONS (13)
  - ACUTE CORONARY SYNDROME [None]
  - ADJUSTMENT DISORDER [None]
  - CHEST PAIN [None]
  - EJECTION FRACTION ABNORMAL [None]
  - ELECTROCARDIOGRAM ST SEGMENT DEPRESSION [None]
  - ELECTROCARDIOGRAM T WAVE INVERSION [None]
  - HEART RATE INCREASED [None]
  - HYPERTENSION [None]
  - LEFT VENTRICULAR DYSFUNCTION [None]
  - OVERDOSE [None]
  - SINUS TACHYCARDIA [None]
  - STRESS [None]
  - TROPONIN I INCREASED [None]
